FAERS Safety Report 8837289 (Version 1)
Quarter: 2012Q4

REPORT INFORMATION
  Report Type: Spontaneous
  Country: US (occurrence: None)
  Receive Date: 20121011
  Receipt Date: 20121011
  Transmission Date: 20130627
  Serious: Yes (Other)
  Sender: FDA-Public Use
  Company Number: None

PATIENT
  Age: 4 Year
  Sex: Male
  Weight: 18.14 kg

DRUGS (1)
  1. ALBENDAZOLE/ALBENZA 200MG [Suspect]
     Indication: ENTEROBIUS VERMICULARIS INFECTION
     Dosage: 400mg once po
     Route: 048
     Dates: start: 20121006, end: 20121006

REACTIONS (2)
  - Eye pain [None]
  - Blindness [None]
